FAERS Safety Report 21503187 (Version 1)
Quarter: 2022Q4

REPORT INFORMATION
  Report Type: Spontaneous
  Country: US (occurrence: None)
  Receive Date: 20221025
  Receipt Date: 20221025
  Transmission Date: 20230112
  Serious: Yes (Other)
  Sender: FDA-Public Use
  Company Number: 2022A350729

PATIENT
  Age: 701 Month
  Sex: Male

DRUGS (1)
  1. FARXIGA [Suspect]
     Active Substance: DAPAGLIFLOZIN PROPANEDIOL
     Indication: Diabetes mellitus
     Route: 048
     Dates: start: 20220718, end: 20220730

REACTIONS (5)
  - Retinal detachment [Unknown]
  - Soft tissue necrosis [Recovering/Resolving]
  - Dysuria [Recovering/Resolving]
  - Genital erythema [Recovering/Resolving]
  - Genital infection fungal [Recovering/Resolving]

NARRATIVE: CASE EVENT DATE: 20220701
